FAERS Safety Report 24004668 (Version 1)
Quarter: 2024Q2

REPORT INFORMATION
  Report Type: Spontaneous
  Country: US (occurrence: None)
  Receive Date: 20240621
  Receipt Date: 20240621
  Transmission Date: 20240716
  Serious: Yes (Hospitalization)
  Sender: FDA-Public Use
  Company Number: None

PATIENT
  Age: 16 Year
  Sex: Male

DRUGS (12)
  1. AMBRISENTAN [Suspect]
     Active Substance: AMBRISENTAN
     Indication: Congenital hypogammaglobulinaemia
  2. CUVITRU [Concomitant]
     Active Substance: HUMAN IMMUNOGLOBULIN G
  3. DIGOXIN [Concomitant]
     Active Substance: DIGOXIN
  4. ATROVENT HFA [Concomitant]
     Active Substance: IPRATROPIUM BROMIDE
  5. CETIRIZINE HCL CHILDRENS [Concomitant]
  6. DIPHENHYDRAMINE HYDROCHLO [Concomitant]
  7. PROAIR HFA [Concomitant]
     Active Substance: ALBUTEROL SULFATE
  8. EPIPEN-JR 2-PAK [Concomitant]
  9. FUROSEMIDE [Concomitant]
     Active Substance: FUROSEMIDE
  10. VITAMIN D3 [Concomitant]
     Active Substance: CHOLECALCIFEROL
  11. SPIRONOLACTONE [Concomitant]
     Active Substance: SPIRONOLACTONE
  12. ALDACTONE [Concomitant]
     Active Substance: SPIRONOLACTONE

REACTIONS (2)
  - Bacteraemia [None]
  - Disease recurrence [None]

NARRATIVE: CASE EVENT DATE: 20240620
